FAERS Safety Report 6609144-7 (Version None)
Quarter: 2010Q1

REPORT INFORMATION
  Report Type: 
  Country: None (occurrence: None)
  Receive Date: 20100212
  Receipt Date: 20100120
  Transmission Date: 20100710
  Serious: Yes (Death)
  Sender: FDA-Public Use
  Company Number: LIT-003-10-US

PATIENT
  Age: 55 Year
  Sex: Male

DRUGS (5)
  1. IMMUNE GLOBULIN INTRAVENOUS (HUMAN) [Suspect]
     Indication: HYPOGAMMAGLOBULINAEMIA
     Dosage: 30 GM IV FREQ UNKNOWN
     Route: 042
  2. PARACETAMOL [Concomitant]
  3. HYDROCORTISONE [Concomitant]
  4. BENADRYL [Concomitant]
  5. CHLORAMBUCIL [Concomitant]

REACTIONS (8)
  - EMBOLIC STROKE [None]
  - EPILEPSY [None]
  - HEADACHE [None]
  - MENTAL STATUS CHANGES [None]
  - MUSCULAR WEAKNESS [None]
  - MYOCARDIAL INFARCTION [None]
  - NO THERAPEUTIC RESPONSE [None]
  - RESPIRATORY DISORDER [None]
